FAERS Safety Report 5314139-X (Version None)
Quarter: 2007Q2

REPORT INFORMATION
  Report Type: 
  Country: None (occurrence: None)
  Receive Date: 20070501
  Receipt Date: 20070417
  Transmission Date: 20071010
  Serious: Yes (Death)
  Sender: FDA-Public Use
  Company Number: US-ABBOTT-07P-163-0366624-00

PATIENT
  Age: 39 Year
  Sex: Male
  Weight: 54 kg

DRUGS (3)
  1. LOPINAVIR/RITONAVIR [Suspect]
     Indication: DRUG USE FOR UNKNOWN INDICATION
     Dosage: NOT REPORTED
  2. TENOFOVIR [Interacting]
     Indication: DRUG USE FOR UNKNOWN INDICATION
     Dosage: NOT REPORTED
  3. LAMIVUDINE [Concomitant]
     Indication: DRUG USE FOR UNKNOWN INDICATION
     Dosage: NOT REPORTED

REACTIONS (2)
  - DRUG INTERACTION [None]
  - HYPOKALAEMIA [None]
